FAERS Safety Report 5837290-4 (Version None)
Quarter: 2008Q3

REPORT INFORMATION
  Report Type: 
  Country: None (occurrence: None)
  Receive Date: 20080807
  Receipt Date: 20080729
  Transmission Date: 20090109
  Serious: Yes (Hospitalization, Other)
  Sender: FDA-Public Use
  Company Number: US-ELI_LILLY_AND_COMPANY-US200807006055

PATIENT
  Sex: Female

DRUGS (5)
  1. HUMALOG [Suspect]
  2. HUMULIN 70/30 [Suspect]
  3. HUMALOG [Suspect]
  4. HUMULIN 70/30 [Suspect]
  5. LANTUS [Concomitant]
     Indication: DIABETES MELLITUS

REACTIONS (10)
  - BLISTER [None]
  - DRUG HYPERSENSITIVITY [None]
  - FOOT FRACTURE [None]
  - HOSPITALISATION [None]
  - INCORRECT DOSE ADMINISTERED [None]
  - LOSS OF CONSCIOUSNESS [None]
  - OEDEMA PERIPHERAL [None]
  - PRURITUS [None]
  - ULCER HAEMORRHAGE [None]
  - VISUAL ACUITY REDUCED [None]
